FAERS Safety Report 10553957 (Version 1)
Quarter: 2014Q4

REPORT INFORMATION
  Report Type: Spontaneous
  Country: US (occurrence: None)
  Receive Date: 20141028
  Receipt Date: 20141028
  Transmission Date: 20150529
  Serious: Yes (Hospitalization)
  Sender: FDA-Public Use
  Company Number: IPC201410-000565

PATIENT
  Age: 59 Year
  Sex: Female

DRUGS (14)
  1. METFORMIN HYDROCHLORIDE (METFORMIN HYDROCHLORIDE) (METFORMIN HYDROCHLORIDE) [Suspect]
     Active Substance: METFORMIN HYDROCHLORIDE
  2. METHOTREXATE (METHOTREXATE) (METHOTREXATE) [Suspect]
     Active Substance: METHOTREXATE
     Indication: PSORIASIS
  3. METOLAZONE (METOLAZONE) (METOLAZONE) [Suspect]
     Active Substance: METOLAZONE
  4. OLMESARTAN (OLMESARTAN) (TABLET) (OLMESARTAN) [Suspect]
     Active Substance: OLMESARTAN
  5. FUROSEMIDE. [Suspect]
     Active Substance: FUROSEMIDE
  6. FEXOFENADINE [Suspect]
     Active Substance: FEXOFENADINE\FEXOFENADINE HYDROCHLORIDE
  7. CETIRIZINE (CETIRIZINE) [Suspect]
     Active Substance: CETIRIZINE HYDROCHLORIDE
  8. AMLODIPINE BESILATE (AMLODIPINE BESILATE) (AMLODIPINE BESILATE) [Suspect]
     Active Substance: AMLODIPINE BESYLATE
  9. COLCHICINE (COLCHICINE) (COLCHICINE) [Suspect]
     Active Substance: COLCHICINE
  10. TICLOPIDINE [Suspect]
     Active Substance: TICLOPIDINE
  11. SPIRONOLACTONEN (SPIRONOLACTONE) [Suspect]
     Active Substance: SPIRONOLACTONE
  12. LISINOPRIL (LISINOPRIL) [Suspect]
     Active Substance: LISINOPRIL
  13. DOCUSATE SODIUM. [Suspect]
     Active Substance: DOCUSATE SODIUM
  14. CARVEDILOL (CARVEDILOL) [Suspect]
     Active Substance: CARVEDILOL

REACTIONS (12)
  - Eosinophilia [None]
  - Skin lesion [None]
  - Occult blood positive [None]
  - Blister [None]
  - Mouth ulceration [None]
  - Erosive duodenitis [None]
  - Abdominal pain upper [None]
  - Pancytopenia [None]
  - Acute kidney injury [None]
  - Dysphagia [None]
  - Pyrexia [None]
  - Toxicity to various agents [None]
